FAERS Safety Report 8984155 (Version 2)
Quarter: 2013Q2

REPORT INFORMATION
  Report Type: Report from Study
  Country: JP (occurrence: JP)
  Receive Date: 20121226
  Receipt Date: 20130603
  Transmission Date: 20140414
  Serious: Yes (Hospitalization)
  Sender: FDA-Public Use
  Company Number: JP-009507513-1212JPN007943

PATIENT
  Age: 57 Year
  Sex: Male
  Weight: 59 kg

DRUGS (12)
  1. PEGINTRON [Suspect]
     Indication: CHRONIC HEPATITIS C
     Dosage: 80 MICROGRAM/WEEK
     Route: 058
     Dates: start: 20120907
  2. REBETOL [Suspect]
     Indication: CHRONIC HEPATITIS C
     Dosage: 600 MG, QD
     Route: 048
     Dates: start: 20120907, end: 20121125
  3. TELAVIC [Suspect]
     Indication: CHRONIC HEPATITIS C
     Dosage: 1500 MG, QD
     Route: 048
     Dates: start: 20120910, end: 20121125
  4. TELAVIC [Suspect]
     Dosage: 2250 MG, QD
     Route: 048
     Dates: start: 20120907, end: 20120909
  5. URSODIOL [Concomitant]
     Indication: CHRONIC HEPATITIS C
     Dosage: 600 MG, QD
     Route: 048
  6. PREDONINE [Concomitant]
     Indication: AUTOIMMUNE HEPATITIS
     Dosage: 12.5 MG, QD
     Route: 048
  7. PARIET [Concomitant]
     Indication: GASTROOESOPHAGEAL REFLUX DISEASE
     Dosage: 10 MG, QD
     Route: 048
  8. SHAKUYAKU-KANZO-TO [Concomitant]
     Indication: HYPOAESTHESIA
     Dosage: 7.5 G, QD
     Route: 048
     Dates: end: 20121130
  9. SPIRONOLACTONE [Concomitant]
     Indication: HYPERTENSION
     Dosage: 25 MG, QD
     Route: 048
  10. RIKKUNSHI-TO [Concomitant]
     Indication: PROPHYLAXIS
     Dosage: 7.5 G, QD
     Route: 048
     Dates: start: 20120907, end: 20121130
  11. TALION (BEPOTASTINE BESYLATE) [Concomitant]
     Indication: PROPHYLAXIS
     Dosage: 20 MG, QD
     Route: 048
     Dates: start: 20120907, end: 20121125
  12. [COMPOSITION UNSPECIFIED] [Concomitant]
     Indication: OSTEOPOROSIS
     Dosage: 35 MG, QD
     Route: 048

REACTIONS (1)
  - Pancreatitis acute [Not Recovered/Not Resolved]
